FAERS Safety Report 18799693 (Version 1)
Quarter: 2021Q1

REPORT INFORMATION
  Report Type: Spontaneous
  Country: CR (occurrence: CR)
  Receive Date: 20210128
  Receipt Date: 20210128
  Transmission Date: 20210419
  Serious: Yes (Other)
  Sender: FDA-Public Use
  Company Number: CR-PFIZER INC-2021069291

PATIENT
  Age: 54 Year
  Sex: Male

DRUGS (2)
  1. SUTENT [Suspect]
     Active Substance: SUNITINIB MALATE
     Dosage: 2 DF, DAILY
  2. SUTENT [Suspect]
     Active Substance: SUNITINIB MALATE
     Dosage: 2 DF, DAILY
     Dates: end: 202012

REACTIONS (5)
  - Fatigue [Unknown]
  - Head discomfort [Unknown]
  - Cancer pain [Recovered/Resolved]
  - Affect lability [Unknown]
  - Cardiac disorder [Recovered/Resolved]
